FAERS Safety Report 17547527 (Version 1)
Quarter: 2020Q1

REPORT INFORMATION
  Report Type: Spontaneous
  Country: US (occurrence: US)
  Receive Date: 20200316
  Receipt Date: 20200316
  Transmission Date: 20200409
  Serious: Yes (Disabling, Other)
  Sender: FDA-Public Use
  Company Number: US-PURDUE PHARMA-USA-2020-0150528

PATIENT
  Sex: Female

DRUGS (1)
  1. OXYCONTIN [Suspect]
     Active Substance: OXYCODONE HYDROCHLORIDE
     Indication: PRODUCT USED FOR UNKNOWN INDICATION
     Dosage: 320 MG, DAILY
     Route: 048

REACTIONS (9)
  - Ankle fracture [Unknown]
  - Lower limb fracture [Unknown]
  - Drug abuse [Unknown]
  - Cardiac disorder [Unknown]
  - Blindness [Unknown]
  - Disability [Unknown]
  - Drug dependence [Unknown]
  - Gait disturbance [Unknown]
  - Unevaluable event [Unknown]
